FAERS Safety Report 5886986-7 (Version None)
Quarter: 2008Q3

REPORT INFORMATION
  Report Type: 
  Country: None (occurrence: None)
  Receive Date: 20080917
  Receipt Date: 20080915
  Transmission Date: 20090109
  Serious: Yes (Other)
  Sender: FDA-Public Use
  Company Number: DE-B.I. PHARMACEUTICALS,INC./RIDGEFIELD-2008-DE-05427DE

PATIENT
  Age: 29 Year
  Sex: Female
  Weight: 70 kg

DRUGS (6)
  1. SIFROL [Suspect]
     Dosage: 7ANZ
     Route: 048
  2. LAMICTAL [Suspect]
     Dosage: 1ANZ
     Route: 048
  3. NORTRILEN 25 [Suspect]
     Dosage: 3ANZ
     Route: 048
  4. SAROTEN 50MG [Suspect]
     Dosage: 2ANZ
     Route: 048
  5. SEROQUEL [Suspect]
     Dosage: 7ANZ
     Route: 048
  6. TAVOR 0,5 [Suspect]
     Dosage: 14ANZ
     Route: 048

REACTIONS (6)
  - DRUG ABUSE [None]
  - HYPOTENSION [None]
  - OVERDOSE [None]
  - SOMNOLENCE [None]
  - SUICIDE ATTEMPT [None]
  - TACHYCARDIA [None]
